FAERS Safety Report 5283327-3 (Version None)
Quarter: 2007Q1

REPORT INFORMATION
  Report Type: 
  Country: None (occurrence: None)
  Receive Date: 20070329
  Receipt Date: 20070329
  Transmission Date: 20070707
  Serious: No
  Sender: FDA-Public Use
  Company Number: None

PATIENT
  Age: 43 Year
  Sex: Female

DRUGS (1)
  1. TUBERSOL [Suspect]
     Route: 023
     Dates: start: 20070304

REACTIONS (2)
  - PRURITUS [None]
  - RASH ERYTHEMATOUS [None]
